FAERS Safety Report 9072380 (Version 2)
Quarter: 2013Q1

REPORT INFORMATION
  Report Type: Spontaneous
  Country: US (occurrence: US)
  Receive Date: 20130207
  Receipt Date: 20130221
  Transmission Date: 20140127
  Serious: Yes (Other)
  Sender: FDA-Public Use
  Company Number: US-PFIZER INC-2013045160

PATIENT
  Age: 77 Year
  Sex: Female
  Weight: 82.54 kg

DRUGS (3)
  1. TOVIAZ [Suspect]
     Indication: BLADDER DISORDER
     Dosage: 8 MG, DAILY
     Dates: start: 20120710
  2. MECLIZINE [Concomitant]
     Indication: INNER EAR DISORDER
     Dosage: 25 MG, 2X/DAY
  3. GLUCOPRO [Concomitant]
     Indication: TYPE 2 DIABETES MELLITUS
     Dosage: UNK

REACTIONS (1)
  - Sinusitis [Recovering/Resolving]
